FAERS Safety Report 8503589-6 (Version None)
Quarter: 2012Q3

REPORT INFORMATION
  Report Type: 
  Country: None (occurrence: None)
  Receive Date: 20120711
  Receipt Date: 20120704
  Transmission Date: 20120928
  Serious: Yes (Hospitalization)
  Sender: FDA-Public Use
  Company Number: CA-INCYTE CORPORATION-2012IN000978

PATIENT
  Sex: Male
  Weight: 71 kg

DRUGS (2)
  1. JAKAFI [Suspect]
     Indication: LIPOSARCOMA
     Dosage: 20 MG, BID
     Route: 048
     Dates: start: 20120501
  2. ACDK-4 INHIBITOR [Concomitant]
     Dosage: 350 MG, QD
     Route: 048
     Dates: start: 20120201

REACTIONS (3)
  - ANAEMIA [None]
  - BLOOD IRON DECREASED [None]
  - LIPOSARCOMA RECURRENT [None]
